FAERS Safety Report 13195520 (Version 1)
Quarter: 2017Q1

REPORT INFORMATION
  Report Type: Spontaneous
  Country: US (occurrence: US)
  Receive Date: 20170207
  Receipt Date: 20170207
  Transmission Date: 20170428
  Serious: No
  Sender: FDA-Public Use
  Company Number: None

PATIENT
  Age: 40 Year
  Sex: Female

DRUGS (1)
  1. EPCLUSA [Suspect]
     Active Substance: SOFOSBUVIR\VELPATASVIR
     Indication: CHRONIC HEPATITIS C

REACTIONS (4)
  - Gastrooesophageal reflux disease [None]
  - Abdominal discomfort [None]
  - Abnormal faeces [None]
  - Tooth extraction [None]

NARRATIVE: CASE EVENT DATE: 20170207
